FAERS Safety Report 23219099 (Version 2)
Quarter: 2024Q2

REPORT INFORMATION
  Report Type: Report from Study
  Country: US (occurrence: US)
  Receive Date: 20231122
  Receipt Date: 20240405
  Transmission Date: 20240716
  Serious: Yes (Other)
  Sender: FDA-Public Use
  Company Number: US-ALXN-A202308054AA

PATIENT
  Age: 69 Year
  Sex: Male

DRUGS (9)
  1. ULTOMIRIS [Suspect]
     Active Substance: RAVULIZUMAB-CWVZ
     Indication: Myasthenia gravis
     Dosage: UNK
     Route: 042
  2. PREDNISONE [Concomitant]
     Active Substance: PREDNISONE
     Indication: Product used for unknown indication
     Dosage: 10 MILLIGRAM, QD
     Route: 065
  3. PREDNISONE [Concomitant]
     Active Substance: PREDNISONE
     Dosage: 7.5 MILLIGRAM
     Route: 065
  4. PREDNISONE [Concomitant]
     Active Substance: PREDNISONE
     Dosage: 5 MILLIGRAM
     Route: 065
  5. HUMAN IMMUNOGLOBULIN G [Concomitant]
     Active Substance: HUMAN IMMUNOGLOBULIN G
     Indication: Product used for unknown indication
     Dosage: 50 G, QMONTH
     Route: 042
  6. HUMAN IMMUNOGLOBULIN G [Concomitant]
     Active Substance: HUMAN IMMUNOGLOBULIN G
     Dosage: 100 G, QMONTH
     Route: 042
  7. HUMAN IMMUNOGLOBULIN G [Concomitant]
     Active Substance: HUMAN IMMUNOGLOBULIN G
     Dosage: UNK, TWICE PER MONTH
     Route: 042
  8. ATORVASTATIN [Concomitant]
     Active Substance: ATORVASTATIN
     Indication: Product used for unknown indication
     Dosage: UNK
     Route: 065
  9. VYVGART [Concomitant]
     Active Substance: EFGARTIGIMOD ALFA-FCAB
     Indication: Product used for unknown indication
     Dosage: UNK
     Route: 065

REACTIONS (15)
  - Ophthalmoplegia [Unknown]
  - Diplopia [Recovering/Resolving]
  - Vision blurred [Not Recovered/Not Resolved]
  - Temperature intolerance [Unknown]
  - Dysphagia [Unknown]
  - Hyperhidrosis [Unknown]
  - Gait inability [Unknown]
  - Dry eye [Unknown]
  - Mastication disorder [Not Recovered/Not Resolved]
  - Oesophageal disorder [Unknown]
  - Stress [Unknown]
  - Asthenopia [Unknown]
  - Vascular calcification [Unknown]
  - Arthralgia [Unknown]
  - Asthenia [Not Recovered/Not Resolved]

NARRATIVE: CASE EVENT DATE: 20230501
